FAERS Safety Report 6843730-4 (Version None)
Quarter: 2010Q3

REPORT INFORMATION
  Report Type: 
  Country: None (occurrence: None)
  Receive Date: 20100715
  Receipt Date: 20100708
  Transmission Date: 20110219
  Serious: Yes (Hospitalization)
  Sender: FDA-Public Use
  Company Number: DE-AMGEN-QUU423264

PATIENT
  Sex: Male

DRUGS (2)
  1. NPLATE [Suspect]
  2. IMMU-G [Concomitant]
     Route: 042

REACTIONS (2)
  - PULMONARY EMBOLISM [None]
  - THROMBOSIS [None]
